FAERS Safety Report 5222739-0 (Version None)
Quarter: 2007Q1

REPORT INFORMATION
  Report Type: 
  Country: None (occurrence: None)
  Receive Date: 20061208
  Receipt Date: 20051215
  Transmission Date: 20070707
  Serious: Yes (Other)
  Sender: FDA-Public Use
  Company Number: 2005169817

PATIENT
  Age: 47 Year
  Sex: Male
  Weight: 138.3471 kg

DRUGS (9)
  1. VIAGRA [Suspect]
     Indication: ERECTILE DYSFUNCTION
     Dosage: 50 MG (50 MG, PRN), ORAL
     Route: 048
     Dates: start: 20050201
  2. LOTREL [Concomitant]
  3. HYDROCHLOROTHIAZIDE [Concomitant]
  4. ACTOS [Concomitant]
  5. LASIX [Concomitant]
  6. LORTAB [Concomitant]
  7. SOMA [Concomitant]
  8. DIAZEPAM [Concomitant]
  9. POTASSIUM (POTASSIUM) [Concomitant]

REACTIONS (5)
  - DIARRHOEA [None]
  - EJACULATION DISORDER [None]
  - ERECTILE DYSFUNCTION [None]
  - ERECTION INCREASED [None]
  - PRIAPISM [None]
